FAERS Safety Report 4492475-7 (Version None)
Quarter: 2004Q4

REPORT INFORMATION
  Report Type: 
  Country: None (occurrence: None)
  Receive Date: 20041103
  Receipt Date: 20041103
  Transmission Date: 20050328
  Serious: Yes (Hospitalization)
  Sender: FDA-Public Use
  Company Number: None

PATIENT
  Age: 65 Year
  Sex: Male
  Weight: 97 kg

DRUGS (4)
  1. ASPIRIN [Suspect]
     Indication: CATHETERISATION CARDIAC
     Dosage: 325 MG DAILY ORAL
     Route: 048
     Dates: start: 20040810, end: 20040816
  2. ASPIRIN [Suspect]
     Indication: CORONARY ARTERY DISEASE
     Dosage: 325 MG DAILY ORAL
     Route: 048
     Dates: start: 20040810, end: 20040816
  3. PLAVIX [Suspect]
     Indication: CATHETERISATION CARDIAC
     Dosage: 75 MG DAILY ORAL
     Route: 048
     Dates: start: 20040810, end: 20040816
  4. PLAVIX [Suspect]
     Indication: CORONARY ARTERY DISEASE
     Dosage: 75 MG DAILY ORAL
     Route: 048
     Dates: start: 20040810, end: 20040816

REACTIONS (6)
  - ABDOMINAL PAIN UPPER [None]
  - ANAEMIA [None]
  - DYSPEPSIA [None]
  - HAEMODIALYSIS [None]
  - MELAENA [None]
  - VOMITING [None]
